FAERS Safety Report 4564010-6 (Version None)
Quarter: 2005Q1

REPORT INFORMATION
  Report Type: 
  Country: None (occurrence: None)
  Receive Date: 20050128
  Receipt Date: 20050117
  Transmission Date: 20050727
  Serious: Yes (Hospitalization, Other)
  Sender: FDA-Public Use
  Company Number: JP-MERCK-0501USA03245

PATIENT
  Age: 52 Year
  Sex: Male

DRUGS (4)
  1. PEPCID [Suspect]
     Route: 048
  2. AZITHROMYCIN [Concomitant]
     Route: 065
  3. DOMPERIDONE [Concomitant]
     Route: 065
  4. CEFTRIAXONE SODIUM [Concomitant]
     Route: 041

REACTIONS (1)
  - PNEUMONITIS [None]
